FAERS Safety Report 20187302 (Version 1)
Quarter: 2021Q4

REPORT INFORMATION
  Report Type: Spontaneous
  Country: US (occurrence: US)
  Receive Date: 20211215
  Receipt Date: 20211215
  Transmission Date: 20220304
  Serious: No
  Sender: FDA-Public Use
  Company Number: US-AMRING PHARMACEUTICALS INC.-2021US003745

PATIENT
  Age: 65 Year
  Sex: Female
  Weight: 61.224 kg

DRUGS (4)
  1. LYSTEDA [Suspect]
     Active Substance: TRANEXAMIC ACID
     Indication: Epistaxis
     Dosage: 650 MG, DAILY
     Route: 048
     Dates: start: 202011
  2. LYSTEDA [Suspect]
     Active Substance: TRANEXAMIC ACID
     Dosage: UNK ONE-HALF 650 MG TABLET ONCE DAILY
     Route: 048
     Dates: start: 202104
  3. LEVOTHYROXINE [Concomitant]
     Active Substance: LEVOTHYROXINE
     Indication: Hypothyroidism
     Dosage: UNK
     Route: 065
  4. ALENDRONATE SODIUM [Concomitant]
     Active Substance: ALENDRONATE SODIUM
     Indication: Osteoporosis
     Dosage: UNK
     Route: 065

REACTIONS (4)
  - Headache [Not Recovered/Not Resolved]
  - Intentional underdose [Unknown]
  - Off label use [Unknown]
  - Therapeutic response unexpected [Unknown]

NARRATIVE: CASE EVENT DATE: 20201101
